FAERS Safety Report 18109553 (Version 1)
Quarter: 2020Q3

REPORT INFORMATION
  Report Type: Spontaneous
  Country: US (occurrence: US)
  Receive Date: 20200804
  Receipt Date: 20200804
  Transmission Date: 20201103
  Serious: No
  Sender: FDA-Public Use
  Company Number: US-ACCORD-152303

PATIENT
  Age: 60 Year
  Sex: Female
  Weight: 85.28 kg

DRUGS (4)
  1. DOCETAXEL ACCORD [Suspect]
     Active Substance: DOCETAXEL
     Indication: BREAST CANCER
     Dosage: SECOND DOSE?CYCLE ONE
     Route: 042
     Dates: start: 20190723, end: 20190813
  2. ROSUVASTATIN/ROSUVASTATIN CALCIUM [Concomitant]
     Active Substance: ROSUVASTATIN CALCIUM
     Dosage: 10 MG ONCE A DAY
     Route: 048
  3. LORATADINE. [Concomitant]
     Active Substance: LORATADINE
     Dosage: 10 MG DAILY
     Route: 048
  4. CENTRUM MULTIVIATAMIN [Concomitant]
     Dosage: DAILY

REACTIONS (3)
  - Dyspnoea [Unknown]
  - Chest discomfort [Unknown]
  - Back pain [Unknown]

NARRATIVE: CASE EVENT DATE: 20190813
